FAERS Safety Report 4296074-1 (Version None)
Quarter: 2004Q1

REPORT INFORMATION
  Report Type: 
  Country: None (occurrence: None)
  Receive Date: 20040217
  Receipt Date: 20040205
  Transmission Date: 20041129
  Serious: Yes (Death)
  Sender: FDA-Public Use
  Company Number: 200410262JP

PATIENT
  Age: 58 Year
  Sex: Female

DRUGS (5)
  1. TAXOTERE [Suspect]
     Indication: UTERINE CANCER
     Route: 041
  2. CARBOPLATIN [Concomitant]
     Indication: UTERINE CANCER
     Route: 041
  3. SOLDEM 3A [Concomitant]
  4. PRIMPERAN TAB [Concomitant]
  5. SOLU-CORTEF [Concomitant]

REACTIONS (1)
  - PULMONARY THROMBOSIS [None]
